FAERS Safety Report 10373946 (Version 1)
Quarter: 2014Q1

REPORT INFORMATION
  Report Type: Spontaneous
  Country: US (occurrence: None)
  Receive Date: 20140306
  Receipt Date: 20140306
  Transmission Date: 20141002
  Serious: Yes (Disabling)
  Sender: FDA-Public Use
  Company Number: 163-21880-13014026

PATIENT
  Age: 77 Year
  Sex: Male
  Weight: 81.65 kg

DRUGS (4)
  1. REVLIMID [Suspect]
     Indication: PLASMA CELL MYELOMA
     Route: 048
     Dates: start: 20120703
  2. DEXAMETHASONE (DEXAMETHASONE) (UNKNOWN) [Concomitant]
  3. SIMVASTATIN (SIMVASTATIN) (TABLETS) [Concomitant]
  4. ASPIRIN (ACETYLSALICYLIC ACID) (UNKNOWN) (ACETYLSALICYLIC ACID) [Concomitant]

REACTIONS (12)
  - Insomnia [None]
  - Dizziness [None]
  - Tremor [None]
  - Constipation [None]
  - Haemorrhagic diathesis [None]
  - Abdominal discomfort [None]
  - Herpes zoster [None]
  - Nasopharyngitis [None]
  - White blood cell count decreased [None]
  - Fatigue [None]
  - Blood calcium decreased [None]
  - Platelet count decreased [None]
